FAERS Safety Report 4725826-6 (Version None)
Quarter: 2005Q3

REPORT INFORMATION
  Report Type: 
  Country: None (occurrence: None)
  Receive Date: 20050727
  Receipt Date: 20050714
  Transmission Date: 20060218
  Serious: Yes (Hospitalization)
  Sender: FDA-Public Use
  Company Number: 2005AP03982

PATIENT
  Age: 63 Year
  Sex: Male

DRUGS (6)
  1. OMEPRAZOLE [Suspect]
     Indication: NEPHROTIC SYNDROME
     Route: 048
  2. OMEPRAZOLE [Suspect]
     Indication: RENAL IMPAIRMENT
     Route: 048
  3. OMEPRAZOLE [Suspect]
     Indication: NEPHROTIC SYNDROME
     Route: 042
  4. OMEPRAZOLE [Suspect]
     Indication: RENAL IMPAIRMENT
     Route: 042
  5. ADALAT [Suspect]
     Route: 048
  6. DIOVAN [Suspect]
     Route: 048

REACTIONS (2)
  - INTERSTITIAL LUNG DISEASE [None]
  - WHITE BLOOD CELL COUNT DECREASED [None]
